FAERS Safety Report 9609718 (Version 1)
Quarter: 2013Q4

REPORT INFORMATION
  Report Type: Spontaneous
  Country: US (occurrence: US)
  Receive Date: 20131009
  Receipt Date: 20131009
  Transmission Date: 20140711
  Serious: No
  Sender: FDA-Public Use
  Company Number: US-009507513-1310USA002356

PATIENT
  Sex: Female

DRUGS (1)
  1. COZAAR [Suspect]
     Indication: BLOOD PRESSURE
     Dosage: ONCE DAILY IN THE AM
     Route: 048
     Dates: start: 2004, end: 2009

REACTIONS (1)
  - Therapeutic response decreased [Unknown]
